FAERS Safety Report 11287876 (Version 1)
Quarter: 2015Q3

REPORT INFORMATION
  Report Type: Spontaneous
  Country: US (occurrence: None)
  Receive Date: 20150720
  Receipt Date: 20150720
  Transmission Date: 20151125
  Serious: No
  Sender: FDA-Public Use
  Company Number: None

PATIENT
  Age: 67 Year
  Sex: Female
  Weight: 62.6 kg

DRUGS (3)
  1. MULTIVITAMINS OR VITAMIN D3 [Concomitant]
  2. ZANTAC [Suspect]
     Active Substance: RANITIDINE HYDROCHLORIDE
     Indication: GASTROOESOPHAGEAL REFLUX DISEASE
     Route: 048
     Dates: start: 20150715, end: 20150717
  3. ESTADIOL [Concomitant]

REACTIONS (2)
  - Abdominal pain upper [None]
  - Heart rate increased [None]

NARRATIVE: CASE EVENT DATE: 20150717
